FAERS Safety Report 8820115 (Version 2)
Quarter: 2012Q4

REPORT INFORMATION
  Report Type: 
  Country: US (occurrence: US)
  Receive Date: 20121001
  Receipt Date: 20121022
  Transmission Date: 20130627
  Serious: Yes (Other)
  Sender: FDA-Public Use
  Company Number: CHPA2012US020210

PATIENT
  Age: 73 Year
  Sex: Female

DRUGS (12)
  1. EXCEDRIN TENSION HEADACHE [Suspect]
     Indication: MIGRAINE
     Dosage: 2 or 3 DF, 4 to 5 TIMES A WEEK
     Route: 048
  2. ANTIHISTAMINES [Suspect]
     Indication: MIGRAINE
     Dosage: 2 PILLS, Unk
     Route: 048
  3. TRAZODONE [Concomitant]
     Indication: PAIN
     Dosage: Unk, Unk
     Dates: end: 201206
  4. AMITRIPTYLINE [Concomitant]
     Indication: PAIN
     Dosage: 4 Unk, AT NIGHT
     Dates: start: 201206
  5. COUMADIN ^BOOTS^ [Concomitant]
     Indication: ATRIAL FIBRILLATION
     Dosage: Unk, Unk
  6. ATENOLOL [Concomitant]
     Indication: HYPERTENSION
     Dosage: Unk, Unk
  7. DRUG THERAPY NOS [Concomitant]
     Indication: GASTROOESOPHAGEAL REFLUX DISEASE
     Dosage: Unk, Unk
  8. TORASEMIDE [Concomitant]
     Indication: OEDEMA
     Dosage: Unk, PRN
  9. MELOXICAM [Concomitant]
     Indication: INFLAMMATION
     Dosage: Unk, Unk
  10. PROVERA [Concomitant]
     Indication: HORMONE REPLACEMENT THERAPY
     Dosage: Unk, FIRST 10 DAY OF EACH MONTH
  11. FLUTICASONE PROPIONATE [Concomitant]
     Indication: SINUS DISORDER
     Dosage: Unk, AT NIGHT
     Route: 045
  12. DRUG THERAPY NOS [Concomitant]
     Indication: FIBROMYALGIA
     Dosage: Unk, Unk

REACTIONS (3)
  - Disease recurrence [Not Recovered/Not Resolved]
  - Drug ineffective [Unknown]
  - Incorrect dose administered [Unknown]
